FAERS Safety Report 15385703 (Version 1)
Quarter: 2018Q4

REPORT INFORMATION
  Report Type: Spontaneous
  Country: FR (occurrence: FR)
  Receive Date: 20180914
  Receipt Date: 20180914
  Transmission Date: 20190204
  Serious: Yes (Hospitalization)
  Sender: FDA-Public Use
  Company Number: FR-BAYER-2018-169316

PATIENT
  Age: 54 Year
  Sex: Male
  Weight: 72.47 kg

DRUGS (6)
  1. ORACILLIN [PHENOXYMETHYLPENICILL1 IN BENZATHINE] [Suspect]
     Active Substance: PENICILLIN V BENZATHINE
     Indication: ANTIBIOTIC PROPHYLAXIS
     Dosage: UNK
     Route: 048
  2. IBRUTINIB [Suspect]
     Active Substance: IBRUTINIB
     Indication: NON-HODGKIN^S LYMPHOMA
     Dosage: UNK
     Route: 048
  3. ZELITREX [Suspect]
     Active Substance: VALACYCLOVIR HYDROCHLORIDE
     Indication: CYTOMEGALOVIRUS INFECTION
     Dosage: UNK
  4. BACTRIM [Suspect]
     Active Substance: SULFAMETHOXAZOLE\TRIMETHOPRIM
     Indication: ANTIBIOTIC PROPHYLAXIS
     Dosage: UNK
     Route: 048
  5. CIFLOX [Suspect]
     Active Substance: CIPROFLOXACIN
     Indication: BACTERIAL DISEASE CARRIER
     Dosage: UNK
     Route: 041
  6. FORTUM [Suspect]
     Active Substance: CEFTAZIDIME
     Indication: BACTERIAL DISEASE CARRIER
     Dosage: UNK
     Route: 041

REACTIONS (1)
  - Renal tubular necrosis [Recovering/Resolving]

NARRATIVE: CASE EVENT DATE: 20180629
